FAERS Safety Report 8557746-3 (Version None)
Quarter: 2012Q3

REPORT INFORMATION
  Report Type: 
  Country: None (occurrence: None)
  Receive Date: 20120801
  Receipt Date: 20120720
  Transmission Date: 20120928
  Serious: Yes (Other)
  Sender: FDA-Public Use
  Company Number: US-PFIZER INC-2012176564

PATIENT
  Sex: Male
  Weight: 87.982 kg

DRUGS (8)
  1. VIAGRA [Suspect]
     Dosage: 50 MG, AS NEEDED
     Route: 048
  2. FISH OIL [Concomitant]
     Indication: ROUTINE HEALTH MAINTENANCE
     Dosage: 1000 MG, DAILY
  3. CALCIUM CARBONATE [Concomitant]
     Dosage: UNK
  4. VIAGRA [Suspect]
     Indication: ERECTILE DYSFUNCTION
     Dosage: UNK
     Route: 048
     Dates: start: 19980101
  5. MELATONIN [Concomitant]
     Indication: SLEEP APNOEA SYNDROME
     Dosage: 6 MG, DAILY
     Route: 048
  6. PANTOPRAZOLE [Concomitant]
     Dosage: UNK
  7. TAMSULOSIN [Concomitant]
     Dosage: UNK
  8. ETODOLAC [Concomitant]
     Dosage: UNK

REACTIONS (8)
  - GAIT DISTURBANCE [None]
  - INTERVERTEBRAL DISC DEGENERATION [None]
  - DRUG INEFFECTIVE [None]
  - NERVE COMPRESSION [None]
  - THERAPEUTIC RESPONSE UNEXPECTED [None]
  - HEARING IMPAIRED [None]
  - SCIATICA [None]
  - SPINAL OSTEOARTHRITIS [None]
